FAERS Safety Report 5244362-4 (Version None)
Quarter: 2007Q1

REPORT INFORMATION
  Report Type: 
  Country: None (occurrence: None)
  Receive Date: 20070222
  Receipt Date: 20070212
  Transmission Date: 20070707
  Serious: Yes (Hospitalization)
  Sender: FDA-Public Use
  Company Number: US-PFIZER INC-2007011455

PATIENT
  Sex: Female

DRUGS (2)
  1. LIPITOR [Suspect]
     Route: 048
  2. NSAID'S [Concomitant]

REACTIONS (1)
  - HAEMOGLOBIN DECREASED [None]
